FAERS Safety Report 5869479-2 (Version None)
Quarter: 2008Q3

REPORT INFORMATION
  Report Type: 
  Country: None (occurrence: None)
  Receive Date: 20080828
  Receipt Date: 20080821
  Transmission Date: 20090109
  Serious: Yes (Other)
  Sender: FDA-Public Use
  Company Number: 100#03#2008-04182

PATIENT
  Age: 76 Year
  Sex: Female

DRUGS (2)
  1. CARVEDILOL [Suspect]
     Indication: HYPERTENSION
     Dosage: 1.5 DF (25 MG) ORAL
     Route: 048
     Dates: start: 20080520
  2. LANSOPRAZOLE [Concomitant]

REACTIONS (1)
  - GASTRIC ULCER [None]
